FAERS Safety Report 21084263 (Version 1)
Quarter: 2022Q3

REPORT INFORMATION
  Report Type: Spontaneous
  Country: US (occurrence: US)
  Receive Date: 20220714
  Receipt Date: 20220714
  Transmission Date: 20221027
  Serious: No
  Sender: FDA-Public Use
  Company Number: US-JAZZ-2022-US-016445

PATIENT
  Sex: Female

DRUGS (4)
  1. EPIDIOLEX [Suspect]
     Active Substance: CANNABIDIOL
     Indication: Product used for unknown indication
     Dosage: 6 MILLILITER, BID
     Route: 048
  2. KETOCONAZOLE [Concomitant]
     Active Substance: KETOCONAZOLE
     Dosage: UNK
  3. EVEROLIMUS [Concomitant]
     Active Substance: EVEROLIMUS
     Dosage: UNK
  4. NYSTATIN [Concomitant]
     Active Substance: NYSTATIN
     Dosage: UNK

REACTIONS (1)
  - Diarrhoea [Unknown]
